FAERS Safety Report 8306150-1 (Version None)
Quarter: 2012Q2

REPORT INFORMATION
  Report Type: 
  Country: None (occurrence: None)
  Receive Date: 20120423
  Receipt Date: 20120416
  Transmission Date: 20120825
  Serious: Yes (Hospitalization)
  Sender: FDA-Public Use
  Company Number: US-ELI_LILLY_AND_COMPANY-US201109002506

PATIENT
  Sex: Female

DRUGS (5)
  1. FORTEO [Suspect]
     Dosage: 20 UG, QD
  2. FORTEO [Suspect]
     Dosage: 20 UG, QD
  3. DIGOXIN [Concomitant]
     Indication: CARDIAC DISORDER
  4. FORTEO [Suspect]
     Indication: OSTEOPOROSIS
     Dosage: 20 UG, QD
     Dates: start: 20110901
  5. DIGOXIN [Concomitant]
     Indication: CARDIAC DISORDER

REACTIONS (7)
  - PARAESTHESIA [None]
  - ABDOMINAL DISCOMFORT [None]
  - ASTHENIA [None]
  - HOSPITALISATION [None]
  - ABDOMINAL PAIN UPPER [None]
  - FATIGUE [None]
  - JOINT SWELLING [None]
